FAERS Safety Report 8114656-3 (Version None)
Quarter: 2012Q1

REPORT INFORMATION
  Report Type: 
  Country: None (occurrence: None)
  Receive Date: 20120206
  Receipt Date: 20120204
  Transmission Date: 20120608
  Serious: Yes (Other)
  Sender: FDA-Public Use
  Company Number: US-PFIZER INC-2012030925

PATIENT
  Sex: Male
  Weight: 54.422 kg

DRUGS (4)
  1. GEODON [Concomitant]
     Indication: SCHIZOPHRENIA
     Dosage: UNK
  2. LEXAPRO [Concomitant]
     Indication: DEPRESSION
     Dosage: UNK
  3. WELLBUTRIN [Concomitant]
     Dosage: UNK
  4. CHANTIX [Suspect]
     Indication: SMOKING CESSATION THERAPY
     Dosage: 0.5 MG, 1X/DAY
     Route: 048
     Dates: start: 20120128

REACTIONS (2)
  - ROAD TRAFFIC ACCIDENT [None]
  - PAIN [None]
